FAERS Safety Report 6215594-3 (Version None)
Quarter: 2009Q2

REPORT INFORMATION
  Report Type: 
  Country: None (occurrence: None)
  Receive Date: 20090603
  Receipt Date: 20090603
  Transmission Date: 20091009
  Serious: No
  Sender: FDA-Public Use
  Company Number: None

PATIENT
  Sex: Male
  Weight: 113.3993 kg

DRUGS (2)
  1. MIRAPEX [Suspect]
     Indication: PAIN IN EXTREMITY
     Dosage: 1MG B1/90 1 TABLET
  2. PRAMIPEXOLE DIHYDROCHLORIDE [Suspect]
     Dosage: EVENING

REACTIONS (7)
  - DYSPNOEA [None]
  - FATIGUE [None]
  - HALLUCINATIONS, MIXED [None]
  - HYPERHIDROSIS [None]
  - INSOMNIA [None]
  - PANIC ATTACK [None]
  - SLEEP TALKING [None]
